FAERS Safety Report 19190066 (Version 1)
Quarter: 2021Q2

REPORT INFORMATION
  Report Type: Spontaneous
  Country: CN (occurrence: CN)
  Receive Date: 20210428
  Receipt Date: 20210428
  Transmission Date: 20210717
  Serious: Yes (Other)
  Sender: FDA-Public Use
  Company Number: CN-GLAXOSMITHKLINE-CN2021APC091851

PATIENT
  Age: 41 Year
  Sex: Female
  Weight: 56 kg

DRUGS (3)
  1. SODIUM CHLORIDE INJECTION [Concomitant]
     Active Substance: SODIUM CHLORIDE
     Indication: VEHICLE SOLUTION USE
     Dosage: 100 ML, BID
     Route: 042
     Dates: start: 20210419, end: 20210420
  2. ZINACEF [Suspect]
     Active Substance: CEFUROXIME SODIUM
     Indication: PELVIC INFLAMMATORY DISEASE
     Dosage: 1.5 G, BID
     Route: 042
     Dates: start: 20210419, end: 20210420
  3. INDOMETACIN SUPPOSITORIES [Suspect]
     Active Substance: INDOMETHACIN
     Indication: PRODUCT USED FOR UNKNOWN INDICATION
     Dosage: 50 MG
     Route: 054
     Dates: start: 20210420

REACTIONS (9)
  - Unresponsive to stimuli [Recovering/Resolving]
  - Chest discomfort [Recovered/Resolved]
  - Hypoaesthesia [Recovering/Resolving]
  - Musculoskeletal stiffness [Recovering/Resolving]
  - Drug hypersensitivity [Unknown]
  - Muscle rigidity [Recovering/Resolving]
  - Pyrexia [Recovering/Resolving]
  - Tremor [Recovering/Resolving]
  - Dyspnoea [Recovered/Resolved]

NARRATIVE: CASE EVENT DATE: 20210420
